FAERS Safety Report 14567529 (Version 1)
Quarter: 2018Q1

REPORT INFORMATION
  Report Type: Spontaneous
  Country: IT (occurrence: IT)
  Receive Date: 20180223
  Receipt Date: 20180223
  Transmission Date: 20180509
  Serious: Yes (Other)
  Sender: FDA-Public Use
  Company Number: IT-PFIZER INC-2018073652

PATIENT
  Sex: Female

DRUGS (1)
  1. FARMORUBICINA [Suspect]
     Active Substance: EPIRUBICIN HYDROCHLORIDE
     Dosage: UNK
     Dates: start: 2006, end: 2009

REACTIONS (2)
  - Occupational exposure to product [Recovered/Resolved]
  - Pemphigus [Recovered/Resolved]

NARRATIVE: CASE EVENT DATE: 2006
